FAERS Safety Report 9674688 (Version 1)
Quarter: 2013Q4

REPORT INFORMATION
  Report Type: Spontaneous
  Country: US (occurrence: None)
  Receive Date: 20131106
  Receipt Date: 20131106
  Transmission Date: 20140711
  Serious: Yes (Other)
  Sender: FDA-Public Use
  Company Number: None

PATIENT
  Age: 39 Year
  Sex: Female
  Weight: 52.16 kg

DRUGS (1)
  1. ESCITALOPRAM [Suspect]
     Indication: DEPRESSION
     Dosage: 1/2 PILL (ABOUT 5 MG) ONCE DAILY TAKEN BY MOUTH
     Route: 048
     Dates: start: 20130923, end: 20131105

REACTIONS (5)
  - Dizziness [None]
  - Nausea [None]
  - Presyncope [None]
  - Headache [None]
  - Product substitution issue [None]
